FAERS Safety Report 6220943-6 (Version None)
Quarter: 2009Q2

REPORT INFORMATION
  Report Type: 
  Country: None (occurrence: None)
  Receive Date: 20090610
  Receipt Date: 20090603
  Transmission Date: 20091009
  Serious: Yes (Other)
  Sender: FDA-Public Use
  Company Number: PT-AMGEN-UK345093

PATIENT
  Sex: Female
  Weight: 60 kg

DRUGS (3)
  1. NEULASTA [Suspect]
     Indication: CHEMOTHERAPY
     Route: 065
     Dates: start: 20090415
  2. TAXOL [Suspect]
     Route: 065
     Dates: start: 20090316
  3. CARBOPLATIN [Concomitant]
     Route: 065
     Dates: start: 20090316

REACTIONS (2)
  - BONE PAIN [None]
  - RESPIRATORY TRACT INFECTION [None]
